FAERS Safety Report 6750535-1 (Version None)
Quarter: 2010Q2

REPORT INFORMATION
  Report Type: 
  Country: None (occurrence: None)
  Receive Date: 20100528
  Receipt Date: 20100528
  Transmission Date: 20101027
  Serious: Yes (Other)
  Sender: FDA-Public Use
  Company Number: None

PATIENT
  Age: 45 Year
  Sex: Female
  Weight: 72.5755 kg

DRUGS (4)
  1. 12 HOUR NASAL DECONGESTANT PSEUDOEPHEDRINE HCI 120MG EQUATE [Suspect]
     Indication: HEADACHE
     Dosage: 120MG 1 TIME A DAY
     Dates: start: 20100415, end: 20100415
  2. 12 HOUR NASAL DECONGESTANT PSEUDOEPHEDRINE HCI 120MG EQUATE [Suspect]
     Indication: SINUS HEADACHE
     Dosage: 120MG 1 TIME A DAY
     Dates: start: 20100415, end: 20100415
  3. SAME PSEUDOPHED AS ABOVE SAME SAME [Suspect]
     Indication: HEADACHE
     Dates: start: 20100526, end: 20100526
  4. SAME PSEUDOPHED AS ABOVE SAME SAME [Suspect]
     Indication: SINUS HEADACHE
     Dates: start: 20100526, end: 20100526

REACTIONS (5)
  - ANXIETY [None]
  - APNOEIC ATTACK [None]
  - HEART RATE INCREASED [None]
  - HYPERVIGILANCE [None]
  - MIDDLE INSOMNIA [None]
